FAERS Safety Report 7639547-3 (Version None)
Quarter: 2011Q3

REPORT INFORMATION
  Report Type: 
  Country: None (occurrence: None)
  Receive Date: 20110727
  Receipt Date: 20110718
  Transmission Date: 20111222
  Serious: Yes (Death, Hospitalization)
  Sender: FDA-Public Use
  Company Number: GR-GLAXOSMITHKLINE-B0734712A

PATIENT
  Age: 78 Year

DRUGS (1)
  1. VOTRIENT [Suspect]
     Indication: RENAL CELL CARCINOMA
     Route: 065

REACTIONS (4)
  - LIVER DISORDER [None]
  - HEPATIC FUNCTION ABNORMAL [None]
  - COMA [None]
  - MENTAL IMPAIRMENT [None]
